FAERS Safety Report 4482237-9 (Version None)
Quarter: 2004Q4

REPORT INFORMATION
  Report Type: 
  Country: None (occurrence: None)
  Receive Date: 20041020
  Receipt Date: 20041001
  Transmission Date: 20050328
  Serious: Yes (Life-Threatening, Hospitalization)
  Sender: FDA-Public Use
  Company Number: JP_041004698

PATIENT
  Age: 65 Year
  Sex: Male

DRUGS (3)
  1. ZYPREXA [Suspect]
     Indication: SCHIZOPHRENIA
  2. DEPAKENE [Concomitant]
  3. LIMAS (LITHIUM CARBONATE) [Concomitant]

REACTIONS (3)
  - DRUG HYPERSENSITIVITY [None]
  - PHOTOSENSITIVITY REACTION [None]
  - SKIN TEST POSITIVE [None]
